FAERS Safety Report 7629974-2 (Version None)
Quarter: 2011Q3

REPORT INFORMATION
  Report Type: 
  Country: None (occurrence: None)
  Receive Date: 20110722
  Receipt Date: 20110720
  Transmission Date: 20111222
  Serious: Yes (Hospitalization)
  Sender: FDA-Public Use
  Company Number: FR-MERCK-1107FRA00093

PATIENT
  Age: 40 Year
  Sex: Male

DRUGS (8)
  1. SULFAMETHOXAZOLE AND TRIMETHOPRIM [Concomitant]
     Indication: PNEUMOCYSTIS JIROVECI PNEUMONIA
     Route: 048
     Dates: start: 20090812, end: 20090827
  2. RITUXIMAB [Concomitant]
     Indication: B-CELL LYMPHOMA
     Route: 042
     Dates: start: 20090821
  3. ZOLPIDEM TARTRATE [Concomitant]
     Indication: INSOMNIA
     Route: 048
     Dates: start: 20090101
  4. POLYETHYLENE GLYCOL 4000 [Concomitant]
     Indication: CONSTIPATION
     Route: 048
     Dates: start: 20090101
  5. CLONAZEPAM [Concomitant]
     Indication: MAJOR DEPRESSION
     Route: 048
     Dates: start: 20090101
  6. ISENTRESS [Suspect]
     Indication: HIV INFECTION
     Route: 048
     Dates: start: 20090820, end: 20090904
  7. VENLAFAXINE HYDROCHLORIDE [Concomitant]
     Indication: MAJOR DEPRESSION
     Route: 048
     Dates: start: 20090101
  8. EMTRICITABINE AND TENOFOVIR DISOPROXIL FUMARATE [Concomitant]
     Indication: HIV INFECTION
     Route: 048
     Dates: start: 20090101

REACTIONS (1)
  - TOXIC SKIN ERUPTION [None]
